FAERS Safety Report 5575014-9 (Version None)
Quarter: 2007Q4

REPORT INFORMATION
  Report Type: 
  Country: None (occurrence: None)
  Receive Date: 20071227
  Receipt Date: 20071220
  Transmission Date: 20080405
  Serious: Yes (Disabling, Other)
  Sender: FDA-Public Use
  Company Number: US-ALLERGAN-0714129US

PATIENT
  Sex: Female
  Weight: 50.794 kg

DRUGS (4)
  1. BOTOX COSMETIC [Suspect]
     Indication: SKIN WRINKLING
     Dosage: 23 UNITS, SINGLE
     Route: 030
     Dates: start: 20071008, end: 20071008
  2. JUVEDERM [Suspect]
     Indication: SKIN WRINKLING
  3. NEURONTIN [Concomitant]
     Indication: FIBROMYALGIA
     Dosage: 600 MG, QPM
     Route: 048
  4. PRAVACHOL [Concomitant]
     Indication: BLOOD CHOLESTEROL
     Dosage: UNK, QPM
     Route: 048

REACTIONS (17)
  - CHEILITIS [None]
  - DEPRESSION [None]
  - DISCOMFORT [None]
  - EYELID PAIN [None]
  - EYELID PTOSIS [None]
  - FACIAL PAIN [None]
  - FATIGUE [None]
  - GINGIVAL DISCOLOURATION [None]
  - INJECTION SITE REACTION [None]
  - MALAISE [None]
  - NEURALGIA [None]
  - ORAL HERPES [None]
  - SKIN WRINKLING [None]
  - TEMPERATURE INTOLERANCE [None]
  - TOOTHACHE [None]
  - VISUAL DISTURBANCE [None]
  - WEIGHT DECREASED [None]
